FAERS Safety Report 8514167-7 (Version None)
Quarter: 2012Q2

REPORT INFORMATION
  Report Type: 
  Country: None (occurrence: None)
  Receive Date: 20120406
  Receipt Date: 20111227
  Transmission Date: 20120825
  Serious: Yes (Hospitalization)
  Sender: FDA-Public Use
  Company Number: US-CYPR-2011-000093

PATIENT
  Sex: Male
  Weight: 134.2647 kg

DRUGS (12)
  1. LISINOPRIL [Concomitant]
  2. LOFIBRA [Concomitant]
  3. CYPHER STENT [Concomitant]
  4. ASPIRIN [Suspect]
     Indication: CORONARY ARTERY DISEASE
     Dosage: (325 MG ORAL) ; (81 MG ORAL) ; (325 MG ORAL) ; (81 MG ORAL)
     Route: 048
     Dates: start: 20111210, end: 20111210
  5. ASPIRIN [Suspect]
     Indication: CORONARY ARTERY DISEASE
     Dosage: (325 MG ORAL) ; (81 MG ORAL) ; (325 MG ORAL) ; (81 MG ORAL)
     Route: 048
     Dates: start: 20100219, end: 20111209
  6. ASPIRIN [Suspect]
     Indication: CORONARY ARTERY DISEASE
     Dosage: (325 MG ORAL) ; (81 MG ORAL) ; (325 MG ORAL) ; (81 MG ORAL)
     Route: 048
     Dates: start: 20111211, end: 20120116
  7. ASPIRIN [Suspect]
     Indication: CORONARY ARTERY DISEASE
     Dosage: (325 MG ORAL) ; (81 MG ORAL) ; (325 MG ORAL) ; (81 MG ORAL)
     Route: 048
     Dates: start: 20120117
  8. CLOPIDOGREL [Suspect]
     Indication: ANTIPLATELET THERAPY
     Dosage: (75 MG ORAL) ; (75 MG ORAL)
     Route: 048
     Dates: start: 20111212
  9. CLOPIDOGREL [Suspect]
     Indication: ANTIPLATELET THERAPY
     Dosage: (75 MG ORAL) ; (75 MG ORAL)
     Route: 048
     Dates: start: 20110129, end: 20111204
  10. TRICOR [Concomitant]
  11. NIASPAN [Concomitant]
  12. TOPROL X1 [Concomitant]

REACTIONS (1)
  - ATRIAL FIBRILLATION [None]
